FAERS Safety Report 13618515 (Version 4)
Quarter: 2018Q1

REPORT INFORMATION
  Report Type: Spontaneous
  Country: US (occurrence: US)
  Receive Date: 20170606
  Receipt Date: 20180313
  Transmission Date: 20180508
  Serious: Yes (Other)
  Sender: FDA-Public Use
  Company Number: US-BRISTOL-MYERS SQUIBB COMPANY-BMS-2017-049395

PATIENT
  Sex: Male

DRUGS (1)
  1. OPDIVO [Suspect]
     Active Substance: NIVOLUMAB
     Indication: LUNG NEOPLASM MALIGNANT
     Dosage: 1 MG/KG, Q2WK
     Route: 042
     Dates: start: 201604

REACTIONS (4)
  - Malignant neoplasm progression [Unknown]
  - Lymphadenopathy [Unknown]
  - Prescribed underdose [Unknown]
  - Dysphonia [Unknown]
